FAERS Safety Report 10281772 (Version 1)
Quarter: 2014Q3

REPORT INFORMATION
  Report Type: Spontaneous
  Country: DZ (occurrence: DZ)
  Receive Date: 20140707
  Receipt Date: 20140707
  Transmission Date: 20150326
  Serious: Yes (Death)
  Sender: FDA-Public Use
  Company Number: DZ-SA-2014SA088454

PATIENT
  Age: 39 Year
  Sex: Male

DRUGS (6)
  1. CISPLATIN. [Concomitant]
     Active Substance: CISPLATIN
     Indication: PHARYNGEAL CANCER
     Dosage: 1 AMPOULE PER DAY, PERFUSION
     Dates: start: 20140601, end: 20140601
  2. ZOPHREN [Concomitant]
     Active Substance: ONDANSETRON
     Indication: VOMITING
     Dosage: 1 AMPOULE PER DAY
     Dates: start: 20140601, end: 20140603
  3. ZOPHREN [Concomitant]
     Active Substance: ONDANSETRON
     Indication: NAUSEA
     Dosage: 1 AMPOULE PER DAY
     Dates: start: 20140601, end: 20140603
  4. TAXOTERE [Suspect]
     Active Substance: DOCETAXEL
     Indication: PHARYNGEAL CANCER
     Dosage: ROUTE PERFUSION
     Dates: start: 20140601, end: 20140601
  5. 5-FU [Suspect]
     Active Substance: FLUOROURACIL
     Indication: PHARYNGEAL CANCER
     Dosage: 1 AMPOULE PER DAY?FORM PERFUSION
     Dates: start: 20140601, end: 20140603
  6. SOLU-MEDROL [Concomitant]
     Active Substance: METHYLPREDNISOLONE SODIUM SUCCINATE
     Indication: PREMEDICATION

REACTIONS (2)
  - Abdominal pain upper [Unknown]
  - Myocardial infarction [Fatal]

NARRATIVE: CASE EVENT DATE: 20140604
